FAERS Safety Report 9417166 (Version 1)
Quarter: 2013Q3

REPORT INFORMATION
  Report Type: Spontaneous
  Country: US (occurrence: None)
  Receive Date: 20130722
  Receipt Date: 20130722
  Transmission Date: 20140515
  Serious: Yes (Death, Life-Threatening, Hospitalization, Other)
  Sender: FDA-Public Use
  Company Number: CL-506-2013

PATIENT
  Age: 58 Year
  Sex: Female

DRUGS (5)
  1. CIPROFLOXACIN [Suspect]
     Indication: ABSCESS
  2. VANCOMYCIN HCL [Suspect]
     Indication: ABSCESS
  3. PREDNIDONE [Concomitant]
  4. CLOMASTINE [Concomitant]
  5. UNFRACTIONATED HEPARIN [Concomitant]

REACTIONS (2)
  - Drug reaction with eosinophilia and systemic symptoms [None]
  - Renal failure [None]
